FAERS Safety Report 14309380 (Version 1)
Quarter: 2017Q4

REPORT INFORMATION
  Report Type: Spontaneous
  Country: CA (occurrence: CA)
  Receive Date: 20171220
  Receipt Date: 20171220
  Transmission Date: 20180321
  Serious: Yes (Hospitalization)
  Sender: FDA-Public Use
  Company Number: CA-CELGENEUS-CAN-20171205121

PATIENT
  Age: 56 Year
  Sex: Female

DRUGS (3)
  1. APO-ROSUVASTATIN [Concomitant]
     Active Substance: ROSUVASTATIN
     Indication: PRODUCT USED FOR UNKNOWN INDICATION
     Route: 065
  2. OTEZLA [Suspect]
     Active Substance: APREMILAST
     Indication: PSORIASIS
     Dosage: 60 MILLIGRAM
     Route: 048
     Dates: start: 20160706
  3. APO-HYDROCHLOROTHIAZIDE [Concomitant]
     Indication: PRODUCT USED FOR UNKNOWN INDICATION
     Route: 065

REACTIONS (3)
  - Rash [Unknown]
  - Cellulitis [Unknown]
  - Nasal congestion [Unknown]

NARRATIVE: CASE EVENT DATE: 201611
